FAERS Safety Report 15860722 (Version 1)
Quarter: 2019Q1

REPORT INFORMATION
  Report Type: Other
  Country: FR (occurrence: FR)
  Receive Date: 20190124
  Receipt Date: 20190124
  Transmission Date: 20190417
  Serious: Yes (Hospitalization)
  Sender: FDA-Public Use
  Company Number: FR-CELLTRION INC.-2019FR017971

PATIENT

DRUGS (7)
  1. CIFROL [Concomitant]
     Dosage: UNK
  2. FLECAINE [Concomitant]
     Active Substance: FLECAINIDE
     Dosage: UNK, 1X/DAY
  3. INFLIXIMAB PFIZER (UNKNOWN) [Suspect]
     Active Substance: INFLIXIMAB
     Dosage: 700 MG, CYCLIC, EVERY 8 WEEKS
     Dates: start: 20180423
  4. GINKOR [GINKGO BILOBA EXTRACT;TROXERUTIN] [Concomitant]
     Dosage: UNK
  5. INFLIXIMAB PFIZER (UNKNOWN) [Suspect]
     Active Substance: INFLIXIMAB
     Indication: CROHN^S DISEASE
     Dosage: 300 MG, CYCLIC, EVERY 8 WEEKS
     Dates: start: 20150805
  6. XARELTO [Concomitant]
     Active Substance: RIVAROXABAN
     Dosage: 20 MG, 2X/DAY
  7. INFLIXIMAB PFIZER (UNKNOWN) [Suspect]
     Active Substance: INFLIXIMAB
     Dosage: 500 MG, CYCLIC, EVERY 8 WEEKS
     Dates: start: 20161129

REACTIONS (4)
  - Underdose [Unknown]
  - Drug ineffective [Unknown]
  - Intestinal obstruction [Recovering/Resolving]
  - Overdose [Unknown]

NARRATIVE: CASE EVENT DATE: 20150805
